FAERS Safety Report 4719236-5 (Version None)
Quarter: 2005Q3

REPORT INFORMATION
  Report Type: 
  Country: None (occurrence: None)
  Receive Date: 20050719
  Receipt Date: 20050708
  Transmission Date: 20060218
  Serious: Yes (Hospitalization)
  Sender: FDA-Public Use
  Company Number: CIP05001625

PATIENT
  Age: 66 Year
  Sex: Female

DRUGS (8)
  1. BENET (RISEDRONATE SODIUM) TABLET, 2.5MG [Suspect]
     Indication: OSTEOPOROSIS
     Dosage: 2.5 MG DAILY, ORAL
     Route: 048
     Dates: start: 20050504, end: 20050621
  2. PRAVASTATIN [Suspect]
     Indication: HYPERCHOLESTEROLAEMIA
     Dosage: 1 DF UNKNOWN, ORAL
     Route: 048
     Dates: start: 20050501, end: 20050621
  3. FAMOTIDINE [Suspect]
     Indication: GASTRITIS
     Dosage: 2 DF, ORAL
     Route: 048
     Dates: start: 20050416, end: 20050621
  4. SULFAMETHOXAZOLE + TRIMETHOPRIM [Suspect]
     Indication: INFECTION PROPHYLAXIS
     Dosage: 2 DF, ORAL
     Route: 048
     Dates: start: 20050418, end: 20050621
  5. ALLELOCK (OLOPATADINE HYDROCHLORIDE) [Suspect]
     Indication: PRURITUS
     Dosage: 2 DF, ORAL
     Route: 048
     Dates: start: 20050406, end: 20050621
  6. AMOBAN (ZOPLICONE) [Concomitant]
  7. PREDNISONE [Concomitant]
  8. DEPAS (ETIZOLAM) [Concomitant]

REACTIONS (12)
  - AGRANULOCYTOSIS [None]
  - BLOOD BILIRUBIN INCREASED [None]
  - C-REACTIVE PROTEIN INCREASED [None]
  - CREATINE PHOSPHOKINASE DECREASED [None]
  - HEPATIC FUNCTION ABNORMAL [None]
  - HYPERCHOLESTEROLAEMIA [None]
  - LYMPHOCYTE PERCENTAGE INCREASED [None]
  - MONOCYTE PERCENTAGE INCREASED [None]
  - NEUTROPHIL PERCENTAGE DECREASED [None]
  - PLATELET COUNT DECREASED [None]
  - PROTEIN TOTAL DECREASED [None]
  - WHITE BLOOD CELL COUNT DECREASED [None]
